FAERS Safety Report 9108174 (Version 2)
Quarter: 2013Q1

REPORT INFORMATION
  Report Type: Spontaneous
  Country: ES (occurrence: ES)
  Receive Date: 20130221
  Receipt Date: 20130313
  Transmission Date: 20140127
  Serious: Yes (Hospitalization, Other)
  Sender: FDA-Public Use
  Company Number: ES-PFIZER INC-2013063508

PATIENT
  Age: 64 Year
  Sex: Male

DRUGS (6)
  1. ALDACTONE [Suspect]
     Indication: HEPATIC CIRRHOSIS
     Dosage: 200 MG, DAY
     Route: 048
     Dates: end: 20100624
  2. SEGURIL [Interacting]
     Indication: HEPATIC CIRRHOSIS
     Dosage: 40 MG, DAY
     Route: 048
     Dates: end: 20100613
  3. SEGURIL [Interacting]
     Dosage: 80 MG, DAY
     Route: 048
     Dates: start: 20100614, end: 20100624
  4. OMEPRAZOL [Concomitant]
     Indication: PROPHYLAXIS
     Dosage: 20 MG, UNK
     Route: 048
  5. VITAMIN B12 AND FOLIC ACID [Concomitant]
     Dosage: 1 DF, DAY
     Route: 048
     Dates: start: 201004, end: 20100624
  6. SUMIAL [Concomitant]
     Dosage: 80 MG, DAY
     Route: 048

REACTIONS (2)
  - Drug interaction [Recovered/Resolved]
  - Hepatic encephalopathy [Recovered/Resolved]
